FAERS Safety Report 13669423 (Version 1)
Quarter: 2017Q2

REPORT INFORMATION
  Report Type: Spontaneous
  Country: US (occurrence: US)
  Receive Date: 20170620
  Receipt Date: 20170620
  Transmission Date: 20170830
  Serious: No
  Sender: FDA-Public Use
  Company Number: US-UPSHER-SMITH LABORATORIES, INC.-2017USL00028

PATIENT
  Age: 47 Year
  Sex: Male
  Weight: 86.17 kg

DRUGS (3)
  1. ZYRTEC [Concomitant]
     Active Substance: CETIRIZINE HYDROCHLORIDE
     Dosage: UNK, 1X/DAY
  2. TESTOSTERONE. [Suspect]
     Active Substance: TESTOSTERONE
     Dosage: 50 MG, 1X/DAY
     Route: 061
     Dates: start: 201705
  3. TESTOSTERONE. [Suspect]
     Active Substance: TESTOSTERONE
     Indication: BLOOD TESTOSTERONE DECREASED
     Dosage: 50 MG, 1X/DAY
     Route: 061
     Dates: start: 201703, end: 201704

REACTIONS (5)
  - Pruritus [Recovering/Resolving]
  - Skin swelling [Recovering/Resolving]
  - Hypersensitivity [Recovering/Resolving]
  - Urticaria [Recovering/Resolving]
  - Rash papular [Recovering/Resolving]

NARRATIVE: CASE EVENT DATE: 201705
